FAERS Safety Report 6172773-1 (Version None)
Quarter: 2009Q2

REPORT INFORMATION
  Report Type: 
  Country: None (occurrence: None)
  Receive Date: 20090430
  Receipt Date: 20090424
  Transmission Date: 20091009
  Serious: Yes (Hospitalization)
  Sender: FDA-Public Use
  Company Number: US-BAYER-US-2007-024918

PATIENT
  Age: 63 Year
  Sex: Male
  Weight: 79 kg

DRUGS (17)
  1. BETASERON [Suspect]
     Indication: SECONDARY PROGRESSIVE MULTIPLE SCLEROSIS
     Dosage: TOTAL DAILY DOSE: 8 MIU
     Route: 058
     Dates: start: 19940622, end: 20071001
  2. OMEPRAZOLE [Concomitant]
     Dosage: TOTAL DAILY DOSE: 80 MG
  3. PROVIGIL [Concomitant]
     Dosage: TOTAL DAILY DOSE: 200 MG
  4. PROVIGIL [Concomitant]
     Dosage: TOTAL DAILY DOSE: 200 MG
  5. BACLOFEN [Concomitant]
     Dosage: TOTAL DAILY DOSE: 10 MG
  6. BACLOFEN [Concomitant]
     Dosage: TOTAL DAILY DOSE: 20 MG
  7. CELEXA [Concomitant]
     Dosage: TOTAL DAILY DOSE: 40 MG
  8. VERAPAMIL [Concomitant]
     Dosage: TOTAL DAILY DOSE: 120 MG
  9. NAMENDA [Concomitant]
     Dosage: TOTAL DAILY DOSE: 10 MG
  10. ARICEPT [Concomitant]
     Dosage: TOTAL DAILY DOSE: 10 MG
  11. CONCERTA [Concomitant]
     Dosage: TOTAL DAILY DOSE: 36 MG
  12. WELLBUTRIN [Concomitant]
     Dosage: TOTAL DAILY DOSE: 75 MG
  13. VALTREX [Concomitant]
     Dosage: TOTAL DAILY DOSE: 500 MG
  14. VESICARE [Concomitant]
     Dosage: TOTAL DAILY DOSE: 10 MG
  15. REQUIP [Concomitant]
     Dosage: TOTAL DAILY DOSE: 0.75 MG
  16. CLONIDINE [Concomitant]
     Dosage: TOTAL DAILY DOSE: 0.1 MG
  17. ASPIRIN [Concomitant]

REACTIONS (3)
  - ASTHENIA [None]
  - CEREBROVASCULAR ACCIDENT [None]
  - MULTIPLE SCLEROSIS [None]
